FAERS Safety Report 20811591 (Version 2)
Quarter: 2024Q2

REPORT INFORMATION
  Report Type: Report from Study
  Country: FR (occurrence: FR)
  Receive Date: 20220510
  Receipt Date: 20240528
  Transmission Date: 20240716
  Serious: Yes (Hospitalization)
  Sender: FDA-Public Use
  Company Number: FR-ABBVIE-22K-056-4378068-00

PATIENT
  Age: 75 Year
  Sex: Female
  Weight: 62 kg

DRUGS (14)
  1. UPADACITINIB [Suspect]
     Active Substance: UPADACITINIB
     Indication: Rheumatoid arthritis
     Dosage: 15 MILLIGRAM
     Route: 048
     Dates: start: 20220126
  2. UPADACITINIB [Suspect]
     Active Substance: UPADACITINIB
     Indication: Rheumatoid arthritis
     Dosage: 15 MILLIGRAM
     Route: 048
  3. ACETAMINOPHEN [Concomitant]
     Active Substance: ACETAMINOPHEN
     Indication: Rheumatoid arthritis
     Route: 048
     Dates: start: 20110525
  4. DICLOFENAC [Concomitant]
     Active Substance: DICLOFENAC
     Indication: Rheumatoid arthritis
     Dosage: 1 APPLICATION
     Route: 061
     Dates: start: 20130419
  5. CALCIUM CARBONATE\CHOLECALCIFEROL [Concomitant]
     Active Substance: CALCIUM CARBONATE\CHOLECALCIFEROL
     Indication: Prophylaxis
     Route: 048
     Dates: start: 20160330
  6. ESOMEPRAZOLE [Concomitant]
     Active Substance: ESOMEPRAZOLE
     Indication: Prophylaxis
     Dosage: 20 MILLIGRAM
     Route: 048
     Dates: start: 20180122
  7. ASPIRIN [Concomitant]
     Active Substance: ASPIRIN
     Indication: Myocardial infarction
     Dosage: 75 MILLIGRAM
     Route: 048
     Dates: start: 2007
  8. ROSUVASTATIN [Concomitant]
     Active Substance: ROSUVASTATIN
     Indication: Prophylaxis
     Dosage: 10 MILLIGRAM
     Route: 048
     Dates: start: 20210415
  9. CANDESARTAN [Concomitant]
     Active Substance: CANDESARTAN
     Indication: Prophylaxis
     Dosage: 4 MILLIGRAM
     Route: 048
     Dates: start: 2021, end: 20220325
  10. BISOPROLOL [Concomitant]
     Active Substance: BISOPROLOL\BISOPROLOL FUMARATE
     Indication: Myocardial infarction
     Dosage: 1.25 MILLIGRAM
     Route: 048
     Dates: start: 201209
  11. LERCANIDIPINE [Concomitant]
     Active Substance: LERCANIDIPINE
     Indication: Myocardial infarction
     Route: 048
     Dates: start: 20220326
  12. LERCANIDIPINE [Concomitant]
     Active Substance: LERCANIDIPINE
     Indication: Myocardial infarction
     Dosage: 10 MILLIGRAM
     Route: 048
     Dates: start: 201209, end: 20220325
  13. CHOLECALCIFEROL [Concomitant]
     Active Substance: CHOLECALCIFEROL
     Indication: Vitamin D deficiency
     Route: 048
     Dates: start: 2021
  14. OFLOXACIN [Concomitant]
     Active Substance: OFLOXACIN
     Indication: Urinary tract infection
     Dosage: 200 MILLIGRAM
     Route: 048
     Dates: start: 20220218, end: 20220225

REACTIONS (2)
  - Coronavirus infection [Recovered/Resolved]
  - Urinary tract infection [Recovered/Resolved]

NARRATIVE: CASE EVENT DATE: 20220210
